FAERS Safety Report 4718873-1 (Version None)
Quarter: 2005Q3

REPORT INFORMATION
  Report Type: 
  Country: None (occurrence: None)
  Receive Date: 20050719
  Receipt Date: 20050701
  Transmission Date: 20060218
  Serious: Yes (Disabling, Other)
  Sender: FDA-Public Use
  Company Number: EWC050744830

PATIENT
  Age: 7 Year
  Sex: Male
  Weight: 22 kg

DRUGS (2)
  1. STRATTERA [Suspect]
     Indication: ATTENTION DEFICIT/HYPERACTIVITY DISORDER
     Dosage: 10 MG/2
     Dates: start: 20050329
  2. CONCRETA MMETHYLPHENIDATE HYDROCHLORIDE) [Concomitant]

REACTIONS (6)
  - ANHEDONIA [None]
  - DECREASED APPETITE [None]
  - HEADACHE [None]
  - PAIN [None]
  - PSYCHOMOTOR HYPERACTIVITY [None]
  - SCREAMING [None]
